FAERS Safety Report 20884889 (Version 1)
Quarter: 2022Q2

REPORT INFORMATION
  Report Type: Spontaneous
  Country: US (occurrence: None)
  Receive Date: 20220527
  Receipt Date: 20220527
  Transmission Date: 20220721
  Serious: No
  Sender: FDA-Public Use
  Company Number: None

PATIENT
  Age: 59 Year
  Sex: Female
  Weight: 54 kg

DRUGS (4)
  1. PAXLOVID [Suspect]
     Active Substance: NIRMATRELVIR\RITONAVIR
     Indication: COVID-19
     Dosage: OTHER QUANTITY : 30 TABLET(S);?FREQUENCY : TWICE A DAY;?
     Dates: start: 20220526, end: 20220527
  2. atorvastatin, 10 Mg [Concomitant]
  3. VITAMINS [Concomitant]
     Active Substance: VITAMINS
  4. CALCIUM [Concomitant]
     Active Substance: CALCIUM

REACTIONS (6)
  - Nausea [None]
  - Vomiting [None]
  - Dizziness [None]
  - Dizziness [None]
  - Dysgeusia [None]
  - Paraesthesia [None]

NARRATIVE: CASE EVENT DATE: 20220527
